FAERS Safety Report 6436597-X (Version None)
Quarter: 2009Q4

REPORT INFORMATION
  Report Type: 
  Country: None (occurrence: None)
  Receive Date: 20091111
  Receipt Date: 20091027
  Transmission Date: 20100525
  Serious: Yes (Other)
  Sender: FDA-Public Use
  Company Number: US-GENENTECH-265933

PATIENT
  Sex: Female

DRUGS (19)
  1. HERCEPTIN [Suspect]
     Indication: BREAST CANCER METASTATIC
     Dosage: 346.5 MG, Q3W
     Route: 042
     Dates: start: 20060810, end: 20061102
  2. HERCEPTIN [Suspect]
     Dosage: 336 MG, UNK
     Route: 042
     Dates: start: 20080101
  3. AVASTIN [Suspect]
     Indication: BREAST CANCER METASTATIC
     Dosage: 7.5 MG/KG, UNK
     Route: 042
     Dates: start: 20081014, end: 20090603
  4. AVASTIN [Suspect]
     Dosage: 10 MG/KG, UNK
     Route: 042
  5. GEMZAR [Suspect]
     Indication: DRUG USE FOR UNKNOWN INDICATION
     Dosage: UNK
     Route: 065
     Dates: start: 20080110
  6. LAPATINIB [Suspect]
     Indication: DRUG USE FOR UNKNOWN INDICATION
     Dosage: UNK
     Route: 065
  7. XELODA [Suspect]
     Indication: BREAST CANCER METASTATIC
     Dosage: UNK
     Route: 048
     Dates: start: 20061226, end: 20070101
  8. KYTRIL [Suspect]
     Indication: NAUSEA
     Dosage: UNK
     Route: 042
  9. ALOXI [Concomitant]
     Indication: PREMEDICATION
     Dosage: UNK
     Dates: start: 20080101
  10. BENADRYL [Concomitant]
     Indication: PREMEDICATION
     Dosage: UNK
  11. TYLENOL [Concomitant]
     Indication: PREMEDICATION
     Dosage: UNK
  12. ACRIVASTINE [Concomitant]
     Indication: DRUG USE FOR UNKNOWN INDICATION
     Dosage: UNK
  13. AMMONIUM CHLORIDE [Concomitant]
     Indication: DRUG USE FOR UNKNOWN INDICATION
     Dosage: UNK
  14. CALAMINE [Concomitant]
     Indication: DRUG USE FOR UNKNOWN INDICATION
     Dosage: UNK
  15. CAMPHOR [Concomitant]
     Indication: DRUG USE FOR UNKNOWN INDICATION
     Dosage: UNK
  16. CODEINE PHOSPHATE [Concomitant]
     Indication: DRUG USE FOR UNKNOWN INDICATION
     Dosage: UNK
  17. MENTHOL [Concomitant]
     Indication: DRUG USE FOR UNKNOWN INDICATION
     Dosage: UNK
  18. SODIUM CITRATE [Concomitant]
     Indication: DRUG USE FOR UNKNOWN INDICATION
     Dosage: UNK
  19. ZINC [Concomitant]
     Indication: DRUG USE FOR UNKNOWN INDICATION
     Dosage: UNK

REACTIONS (8)
  - BRAIN OEDEMA [None]
  - CONVULSION [None]
  - DISEASE PROGRESSION [None]
  - DRUG INEFFECTIVE [None]
  - INFUSION SITE REACTION [None]
  - ONYCHOCLASIS [None]
  - PARTIAL SEIZURES [None]
  - SKIN FISSURES [None]
